FAERS Safety Report 4704162-8 (Version None)
Quarter: 2005Q2

REPORT INFORMATION
  Report Type: 
  Country: None (occurrence: None)
  Receive Date: 20050629
  Receipt Date: 20050621
  Transmission Date: 20051028
  Serious: Yes (Hospitalization)
  Sender: FDA-Public Use
  Company Number: ERD2002A00182

PATIENT
  Age: 69 Year
  Sex: Male

DRUGS (11)
  1. PIOGLITAZONE HCL [Suspect]
     Indication: DIABETES MELLITUS NON-INSULIN-DEPENDENT
     Dosage: 45 MG, ORAL
     Route: 048
     Dates: start: 20020305, end: 20021214
  2. GLICLAZIDE (GLICLAZIDE) [Concomitant]
  3. ENALAPRIL MALEATE [Concomitant]
  4. PRESTARIUM (PERINDOPRIL) [Concomitant]
  5. ISOPTIN [Concomitant]
  6. CAMELURA (DOXAZOSIN) [Concomitant]
  7. FUROSEMIDE [Concomitant]
  8. TICLOPIDINE (TICLOPIDINE) [Concomitant]
  9. SIMVASTATIN [Concomitant]
  10. PENTOXIFYLLINE [Concomitant]
  11. KALIUM (POTASSIUM CHLORIDE) [Concomitant]

REACTIONS (14)
  - ANAEMIA OF CHRONIC DISEASE [None]
  - AORTIC VALVE INCOMPETENCE [None]
  - LIVER DISORDER [None]
  - MITRAL VALVE INCOMPETENCE [None]
  - OEDEMA [None]
  - PLATELET COUNT DECREASED [None]
  - PROTHROMBIN TIME SHORTENED [None]
  - PULMONARY HYPERTENSION [None]
  - RENAL FAILURE CHRONIC [None]
  - RIGHT VENTRICULAR FAILURE [None]
  - TRICUSPID VALVE INCOMPETENCE [None]
  - VENOUS STASIS [None]
  - VENTRICULAR HYPERTROPHY [None]
  - WHITE BLOOD CELL COUNT DECREASED [None]
